FAERS Safety Report 7525336-7 (Version None)
Quarter: 2011Q2

REPORT INFORMATION
  Report Type: 
  Country: None (occurrence: None)
  Receive Date: 20110606
  Receipt Date: 20110524
  Transmission Date: 20111010
  Serious: Yes (Hospitalization, Other)
  Sender: FDA-Public Use
  Company Number: IT-ELI_LILLY_AND_COMPANY-IT201105006832

PATIENT
  Sex: Male

DRUGS (2)
  1. CARBOPLATIN [Concomitant]
     Indication: LUNG ADENOCARCINOMA METASTATIC
     Dosage: 300 MG, /TOTAL
     Route: 042
     Dates: start: 20110228, end: 20110228
  2. ALIMTA [Suspect]
     Indication: LUNG ADENOCARCINOMA METASTATIC
     Dosage: 650 MG/TOTAL
     Route: 042
     Dates: start: 20110228, end: 20110228

REACTIONS (4)
  - EPISTAXIS [None]
  - ASTHENIA [None]
  - PETECHIAE [None]
  - PANCYTOPENIA [None]
